FAERS Safety Report 9919871 (Version 6)
Quarter: 2014Q4

REPORT INFORMATION
  Report Type: Spontaneous
  Country: US (occurrence: US)
  Receive Date: 20140224
  Receipt Date: 20141215
  Transmission Date: 20150529
  Serious: No
  Sender: FDA-Public Use
  Company Number: US-LUNDBECK-DKLU1097014

PATIENT
  Age: 2 Year
  Sex: Female
  Weight: 14 kg

DRUGS (3)
  1. SABRIL [Suspect]
     Active Substance: VIGABATRIN
     Indication: INFANTILE SPASMS
     Route: 048
     Dates: start: 20131230
  2. SABRIL [Suspect]
     Active Substance: VIGABATRIN
     Route: 048
     Dates: start: 20140101
  3. SABRIL [Suspect]
     Active Substance: VIGABATRIN
     Route: 048
     Dates: start: 20131230

REACTIONS (9)
  - Aggression [Unknown]
  - Oral administration complication [Unknown]
  - Mood altered [Unknown]
  - Anger [Unknown]
  - Restlessness [Unknown]
  - Injury [Unknown]
  - Poor quality sleep [Recovered/Resolved]
  - Psychomotor hyperactivity [Unknown]
  - Energy increased [Unknown]

NARRATIVE: CASE EVENT DATE: 20140101
